FAERS Safety Report 6684758-7 (Version None)
Quarter: 2010Q2

REPORT INFORMATION
  Report Type: 
  Country: None (occurrence: None)
  Receive Date: 20100416
  Receipt Date: 20100413
  Transmission Date: 20101027
  Serious: Yes (Hospitalization)
  Sender: FDA-Public Use
  Company Number: JP-SP-2009-04149

PATIENT
  Age: 65 Year
  Sex: Male

DRUGS (1)
  1. IMMUCYST [Suspect]
     Indication: BLADDER CANCER
     Dosage: NOT REPORTED
     Route: 043

REACTIONS (4)
  - ARTHRALGIA [None]
  - MYALGIA [None]
  - REITER'S SYNDROME [None]
  - WHITE BLOOD CELL COUNT INCREASED [None]
